FAERS Safety Report 9748788 (Version 2)
Quarter: 2013Q4

REPORT INFORMATION
  Report Type: Spontaneous
  Country: US (occurrence: US)
  Receive Date: 20131212
  Receipt Date: 20131212
  Transmission Date: 20140711
  Serious: No
  Sender: FDA-Public Use
  Company Number: US-INCYTE CORPORATION-2013IN001317

PATIENT
  Age: 70 Year
  Sex: Male

DRUGS (11)
  1. JAKAFI [Suspect]
     Indication: MYELOFIBROSIS
     Dosage: 20 MG, BID
     Route: 048
     Dates: start: 20130611
  2. JAKAFI [Suspect]
     Indication: SPLENOMEGALY
  3. DIGOXIN [Concomitant]
     Dosage: NOT SPECIFIED
     Dates: end: 2013
  4. DIGOXIN [Concomitant]
     Dosage: NOT SPECIFIED (DOSE REDUCED)
     Dates: start: 2013
  5. LISINOPRIL [Concomitant]
  6. GEMFIBROZIL [Concomitant]
  7. ASPIRIN [Concomitant]
  8. IRON [Concomitant]
     Indication: SUPPLEMENTATION THERAPY
  9. METOPROLOL [Concomitant]
  10. SYNTHROID [Concomitant]
  11. FUROSEMIDE [Concomitant]

REACTIONS (3)
  - Heart rate decreased [Recovering/Resolving]
  - Blood blister [Recovering/Resolving]
  - Pruritus [Unknown]
